FAERS Safety Report 6570392-6 (Version None)
Quarter: 2010Q1

REPORT INFORMATION
  Report Type: 
  Country: None (occurrence: None)
  Receive Date: 20100204
  Receipt Date: 20081125
  Transmission Date: 20100710
  Serious: No
  Sender: FDA-Public Use
  Company Number: A0765943A

PATIENT
  Sex: Female

DRUGS (1)
  1. ARIXTRA [Suspect]
     Indication: DRUG USE FOR UNKNOWN INDICATION
     Dosage: 2.5MG SINGLE DOSE
     Route: 058

REACTIONS (1)
  - PRODUCT QUALITY ISSUE [None]
